FAERS Safety Report 5826619-9 (Version None)
Quarter: 2008Q3

REPORT INFORMATION
  Report Type: 
  Country: None (occurrence: None)
  Receive Date: 20080723
  Receipt Date: 20080515
  Transmission Date: 20090109
  Serious: Yes (Hospitalization)
  Sender: FDA-Public Use
  Company Number: FPI-08-TEV-043

PATIENT
  Age: 18 Month
  Sex: Female
  Weight: 19 kg

DRUGS (4)
  1. TEV-TROPIN [Suspect]
     Indication: GROWTH RETARDATION
     Dates: start: 20080508
  2. TEV-TROPIN [Suspect]
     Indication: HYPOPITUITARISM
     Dates: start: 20080508
  3. HYDROCORTISONE [Concomitant]
  4. LEVOTHYROXINE SODIUM [Concomitant]

REACTIONS (7)
  - DEPRESSED LEVEL OF CONSCIOUSNESS [None]
  - DIARRHOEA [None]
  - LETHARGY [None]
  - LISTLESS [None]
  - SLUGGISHNESS [None]
  - VIRAL INFECTION [None]
  - VOMITING [None]
